FAERS Safety Report 21245155 (Version 2)
Quarter: 2022Q3

REPORT INFORMATION
  Report Type: Spontaneous
  Country: US (occurrence: US)
  Receive Date: 20220823
  Receipt Date: 20220907
  Transmission Date: 20221027
  Serious: Yes (Hospitalization)
  Sender: FDA-Public Use
  Company Number: US-BIOMARINAP-US-2022-145111

PATIENT

DRUGS (1)
  1. VIMIZIM [Suspect]
     Active Substance: ELOSULFASE ALFA
     Indication: Mucopolysaccharidosis IV
     Dosage: 140 MILLIGRAM, QW
     Route: 042
     Dates: start: 2019

REACTIONS (2)
  - Tonsillectomy [Recovered/Resolved]
  - Vascular cauterisation [Recovered/Resolved]

NARRATIVE: CASE EVENT DATE: 20220720
